FAERS Safety Report 25432636 (Version 1)
Quarter: 2025Q2

REPORT INFORMATION
  Report Type: Spontaneous
  Country: JP (occurrence: JP)
  Receive Date: 20250613
  Receipt Date: 20250613
  Transmission Date: 20250717
  Serious: Yes (Hospitalization, Other)
  Sender: RANBAXY
  Company Number: JP-SUN PHARMACEUTICAL INDUSTRIES LTD-2025R1-511113

PATIENT
  Age: 10 Year
  Sex: Female

DRUGS (4)
  1. PERAMPANEL [Suspect]
     Active Substance: PERAMPANEL
     Indication: Partial seizures with secondary generalisation
     Dosage: 8 MG (0.32 MG/KG)/DAY,QD DAILY
     Route: 065
  2. LEVETIRACETAM [Suspect]
     Active Substance: LEVETIRACETAM
     Indication: Partial seizures with secondary generalisation
     Dosage: 50 MILLIGRAM/KILOGRAM, DAY, BID DAILY, MORNING AND EVENING
     Route: 065
  3. LAMOTRIGINE [Suspect]
     Active Substance: LAMOTRIGINE
     Indication: Partial seizures with secondary generalisation
     Route: 065
  4. LACOSAMIDE [Suspect]
     Active Substance: LACOSAMIDE
     Indication: Partial seizures with secondary generalisation
     Dosage: 10 MILLIGRAM/KILOGRAM, DAY, BID DAILY,MORNING AND EVENING
     Route: 065

REACTIONS (3)
  - Attention deficit hyperactivity disorder [Unknown]
  - Gait disturbance [Recovering/Resolving]
  - Drug level increased [Recovering/Resolving]
